FAERS Safety Report 6450347-2 (Version None)
Quarter: 2009Q4

REPORT INFORMATION
  Report Type: 
  Country: None (occurrence: None)
  Receive Date: 20091123
  Receipt Date: 20091111
  Transmission Date: 20100525
  Serious: Yes (Hospitalization)
  Sender: FDA-Public Use
  Company Number: DE-AMGEN-US374699

PATIENT
  Age: 69 Year
  Sex: Male

DRUGS (3)
  1. ENBREL [Suspect]
     Indication: RHEUMATOID ARTHRITIS
     Dosage: PRE-FILLED SYRINGE, 50 MG ONE TIME PER WEEK
     Route: 058
     Dates: start: 20041201
  2. METHOTREXATE [Concomitant]
     Route: 058
     Dates: end: 20090901
  3. METHOTREXATE [Concomitant]
     Route: 058
     Dates: start: 20091031

REACTIONS (5)
  - ARRHYTHMIA [None]
  - CONDITION AGGRAVATED [None]
  - RASH [None]
  - RHEUMATOID ARTHRITIS [None]
  - SWOLLEN TONGUE [None]
